FAERS Safety Report 9331968 (Version 1)
Quarter: 2013Q2

REPORT INFORMATION
  Report Type: Spontaneous
  Country: US (occurrence: None)
  Receive Date: 20130603
  Receipt Date: 20130603
  Transmission Date: 20140414
  Serious: Yes (Hospitalization)
  Sender: FDA-Public Use
  Company Number: UTC-033288

PATIENT
  Age: 78 Year
  Sex: Female
  Weight: 68.1 kg

DRUGS (2)
  1. TYVASO (6 MICROGRAM, AEROSOL FOR INHALATION) (TREPROSTINIL SODIUM) [Suspect]
     Indication: PULMONARY ARTERIAL HYPERTENSION
     Route: 055
     Dates: start: 20130517
  2. FLOLAN (EPOPROSTENOL) [Concomitant]

REACTIONS (3)
  - Gastrointestinal haemorrhage [None]
  - Epistaxis [None]
  - Haemoptysis [None]
